FAERS Safety Report 22090237 (Version 1)
Quarter: 2023Q1

REPORT INFORMATION
  Report Type: Spontaneous
  Country: DK (occurrence: DK)
  Receive Date: 20230313
  Receipt Date: 20230313
  Transmission Date: 20230418
  Serious: Yes (Other)
  Sender: FDA-Public Use
  Company Number: DK-BRISTOL-MYERS SQUIBB COMPANY-2023-033555

PATIENT
  Age: 62 Year
  Sex: Male

DRUGS (5)
  1. NIVOLUMAB [Suspect]
     Active Substance: NIVOLUMAB
     Indication: Malignant melanoma
     Dosage: 1ST CYCLE
     Dates: start: 202103, end: 202104
  2. NIVOLUMAB [Suspect]
     Active Substance: NIVOLUMAB
     Dosage: CYCLES 3 + 4 ADMINISTERED
     Dates: start: 202105, end: 202106
  3. NIVOLUMAB [Suspect]
     Active Substance: NIVOLUMAB
     Dosage: MAINTAINMENT THERAPY
     Dates: start: 202106, end: 202111
  4. IPILIMUMAB [Suspect]
     Active Substance: IPILIMUMAB
     Indication: Malignant melanoma
     Dosage: 1ST CYCLE
     Dates: start: 202103, end: 202104
  5. IPILIMUMAB [Suspect]
     Active Substance: IPILIMUMAB
     Dosage: CYCLES 3 + 4 ADMINISTERED
     Dates: start: 202105, end: 202106

REACTIONS (11)
  - Skin toxicity [Not Recovered/Not Resolved]
  - Endocrine toxicity [Not Recovered/Not Resolved]
  - Gastrointestinal toxicity [Unknown]
  - Diarrhoea [Not Recovered/Not Resolved]
  - Arthralgia [Unknown]
  - Immune-mediated arthritis [Not Recovered/Not Resolved]
  - Pancreatic failure [Not Recovered/Not Resolved]
  - Metastases to central nervous system [Recovered/Resolved]
  - Type 1 diabetes mellitus [Not Recovered/Not Resolved]
  - Hepatotoxicity [Unknown]
  - Weight decreased [Unknown]

NARRATIVE: CASE EVENT DATE: 20210101
